FAERS Safety Report 13878824 (Version 1)
Quarter: 2017Q3

REPORT INFORMATION
  Report Type: Spontaneous
  Country: AR (occurrence: AR)
  Receive Date: 20170817
  Receipt Date: 20170817
  Transmission Date: 20171127
  Serious: Yes (Other)
  Sender: FDA-Public Use
  Company Number: AR-PFIZER INC-2017356159

PATIENT
  Sex: Female

DRUGS (1)
  1. METHOTREXATE SODIUM. [Suspect]
     Active Substance: METHOTREXATE SODIUM
     Dosage: UNK UNK, WEEKLY

REACTIONS (5)
  - Dizziness [Unknown]
  - Fibromyalgia [Unknown]
  - Muscle contracture [Unknown]
  - Breast cancer [Unknown]
  - Pain [Unknown]

NARRATIVE: CASE EVENT DATE: 2012
